FAERS Safety Report 5893046-8 (Version None)
Quarter: 2008Q3

REPORT INFORMATION
  Report Type: 
  Country: None (occurrence: None)
  Receive Date: 20080923
  Receipt Date: 20080211
  Transmission Date: 20090109
  Serious: No
  Sender: FDA-Public Use
  Company Number: US-ASTRAZENECA-2006UW27647

PATIENT
  Age: 19280 Day
  Sex: Female
  Weight: 73.2 kg

DRUGS (5)
  1. SEROQUEL [Suspect]
     Indication: MIGRAINE
     Route: 048
     Dates: start: 20030105, end: 20060601
  2. SEROQUEL [Suspect]
     Indication: SLEEP DISORDER
     Route: 048
     Dates: start: 20030105, end: 20060601
  3. SEROQUEL [Suspect]
     Dosage: 25-MG-100MG
     Route: 048
     Dates: start: 20040601, end: 20060101
  4. SEROQUEL [Suspect]
     Dosage: 25-MG-100MG
     Route: 048
     Dates: start: 20040601, end: 20060101
  5. LIPITOR [Concomitant]
     Route: 048
     Dates: start: 20050101

REACTIONS (4)
  - BLOOD CHOLESTEROL INCREASED [None]
  - DIABETES MELLITUS [None]
  - DRUG HYPERSENSITIVITY [None]
  - HYPERTENSION [None]
